FAERS Safety Report 9008703 (Version 1)
Quarter: 2013Q1

REPORT INFORMATION
  Report Type: Spontaneous
  Country: IT (occurrence: IT)
  Receive Date: 20130111
  Receipt Date: 20130111
  Transmission Date: 20140127
  Serious: Yes (Other)
  Sender: FDA-Public Use
  Company Number: IT-PFIZER INC-2012081253

PATIENT
  Age: 35 Year
  Sex: Female

DRUGS (3)
  1. SALAZOPYRIN [Suspect]
     Indication: RHEUMATOID ARTHRITIS
     Dosage: 1 UNIT DOSE DAILY
     Route: 048
     Dates: start: 20120101, end: 20120226
  2. TELFAST [Concomitant]
  3. MEDROL [Concomitant]

REACTIONS (3)
  - Erythema [Recovering/Resolving]
  - Oedema peripheral [Recovering/Resolving]
  - Mechanical urticaria [Recovering/Resolving]
